FAERS Safety Report 10620630 (Version 4)
Quarter: 2015Q1

REPORT INFORMATION
  Report Type: Report from Study
  Country: IT (occurrence: IT)
  Receive Date: 20141202
  Receipt Date: 20150210
  Transmission Date: 20150720
  Serious: Yes (Life-Threatening, Hospitalization)
  Sender: FDA-Public Use
  Company Number: IT-GILEAD-2014-0125034

PATIENT
  Age: 64 Year
  Sex: Female
  Weight: 64.2 kg

DRUGS (24)
  1. PERFALGAN [Concomitant]
     Active Substance: ACETAMINOPHEN
     Indication: PROPHYLAXIS
     Route: 042
     Dates: start: 20141009
  2. ALLOPURINOLO [Concomitant]
     Active Substance: ALLOPURINOL
     Indication: PROPHYLAXIS
     Route: 048
     Dates: start: 20141011
  3. BENDAMUSTINE [Suspect]
     Active Substance: BENDAMUSTINE
     Indication: CHRONIC LYMPHOCYTIC LEUKAEMIA
     Dosage: 154 MG, CYCLICAL
     Route: 042
     Dates: start: 20141009, end: 20141009
  4. IDELALISIB [Suspect]
     Active Substance: IDELALISIB
     Dosage: 150 MG, BID
     Route: 048
     Dates: start: 20141115, end: 20141127
  5. BENDAMUSTINE [Suspect]
     Active Substance: BENDAMUSTINE
     Dosage: 154 MG, CYCLICAL
     Route: 042
     Dates: start: 20141010, end: 20141010
  6. ACICLOVIR [Concomitant]
     Active Substance: ACYCLOVIR
     Indication: VIRAL INFECTION
     Route: 048
     Dates: start: 20141011
  7. ZOFRAN                             /00955301/ [Concomitant]
     Active Substance: ONDANSETRON HYDROCHLORIDE
     Indication: PROPHYLAXIS
     Route: 042
     Dates: start: 20141009
  8. TRIASPORIN [Concomitant]
     Active Substance: ITRACONAZOLE
     Indication: ANTIFUNGAL TREATMENT
     Route: 061
     Dates: start: 20141119
  9. BENDAMUSTINE [Suspect]
     Active Substance: BENDAMUSTINE
     Dosage: 154 MG, CYCLICAL
     Route: 042
     Dates: start: 20141106, end: 20141106
  10. RITUXIMAB [Suspect]
     Active Substance: RITUXIMAB
     Indication: CHRONIC LYMPHOCYTIC LEUKAEMIA
     Dosage: 641 MG, CYCLICAL
     Route: 042
     Dates: start: 20141009, end: 20141009
  11. PANTOPAN [Concomitant]
     Active Substance: PANTOPRAZOLE SODIUM
     Indication: PROPHYLAXIS AGAINST GASTROINTESTINAL ULCER
     Route: 048
     Dates: start: 1999
  12. DILATREND [Concomitant]
     Active Substance: CARVEDILOL
     Indication: HYPERTENSION
     Route: 048
     Dates: start: 1994
  13. LAMIVUDINA [Concomitant]
     Active Substance: LAMIVUDINE
     Indication: ANTIVIRAL PROPHYLAXIS
     Route: 048
     Dates: start: 20141009
  14. LORAMYC [Concomitant]
     Active Substance: MICONAZOLE
     Indication: INFECTION PROPHYLAXIS
     Route: 048
     Dates: start: 20141011, end: 20141118
  15. RITUXIMAB [Suspect]
     Active Substance: RITUXIMAB
     Dosage: 855 MG, CYCLICAL
     Route: 042
     Dates: start: 20141105, end: 20141105
  16. BACTRIM [Concomitant]
     Active Substance: SULFAMETHOXAZOLE\TRIMETHOPRIM
     Indication: INFECTION PROPHYLAXIS
     Route: 048
     Dates: start: 20141011
  17. FASTURTEC [Concomitant]
     Active Substance: RASBURICASE
     Indication: PROPHYLAXIS
     Route: 042
     Dates: start: 20141009
  18. NORVASC [Concomitant]
     Active Substance: AMLODIPINE BESYLATE
     Indication: HYPERTENSION
     Route: 048
     Dates: start: 1994, end: 20141107
  19. TRIMETON                           /00086101/ [Concomitant]
     Indication: PROPHYLAXIS
     Route: 042
     Dates: start: 20141009
  20. FLEBOCORTID [Concomitant]
     Indication: PROPHYLAXIS
     Route: 042
     Dates: start: 20141009
  21. LENTO-KALIUM [Concomitant]
     Indication: HYPOKALAEMIA
     Route: 048
     Dates: start: 20141010
  22. TICLOPIDINA [Concomitant]
     Active Substance: TICLOPIDINE
     Indication: THROMBOSIS PROPHYLAXIS
     Route: 048
     Dates: start: 2007
  23. IDELALISIB [Suspect]
     Active Substance: IDELALISIB
     Indication: CHRONIC LYMPHOCYTIC LEUKAEMIA
     Dosage: 150 MG, BID
     Route: 048
     Dates: start: 20141009, end: 20141107
  24. BENDAMUSTINE [Suspect]
     Active Substance: BENDAMUSTINE
     Dosage: 154 MG, CYCLICAL
     Route: 042
     Dates: start: 20141105, end: 20141105

REACTIONS (2)
  - Aspartate aminotransferase increased [Recovered/Resolved]
  - Alanine aminotransferase increased [Recovered/Resolved]

NARRATIVE: CASE EVENT DATE: 20141125
